FAERS Safety Report 5071487-9 (Version None)
Quarter: 2006Q3

REPORT INFORMATION
  Report Type: 
  Country: None (occurrence: None)
  Receive Date: 20060803
  Receipt Date: 20060803
  Transmission Date: 20061208
  Serious: Yes (Other)
  Sender: FDA-Public Use
  Company Number: None

PATIENT
  Age: 1 Day
  Sex: Female
  Weight: 3.375 kg

DRUGS (1)
  1. PROZAC [Suspect]
     Indication: DEPRESSION
     Dosage: 20 MGRS DAILY PO
     Route: 048
     Dates: start: 20051001, end: 20060726

REACTIONS (10)
  - BLOOD PH DECREASED [None]
  - CARDIAC MURMUR [None]
  - CYANOSIS NEONATAL [None]
  - DRUG EXPOSURE DURING PREGNANCY [None]
  - HEART DISEASE CONGENITAL [None]
  - NEONATAL DISORDER [None]
  - PCO2 INCREASED [None]
  - PERSISTENT FOETAL CIRCULATION [None]
  - PO2 DECREASED [None]
  - PULMONARY HYPERTENSION [None]
